FAERS Safety Report 19146499 (Version 2)
Quarter: 2021Q2

REPORT INFORMATION
  Report Type: Spontaneous
  Country: US (occurrence: US)
  Receive Date: 20210416
  Receipt Date: 20210423
  Transmission Date: 20210717
  Serious: Yes (Life-Threatening, Other)
  Sender: FDA-Public Use
  Company Number: US-AMGEN-USASP2021054150

PATIENT

DRUGS (17)
  1. METHYLPREDNISOLONE. [Concomitant]
     Active Substance: METHYLPREDNISOLONE
     Indication: SYSTEMIC LUPUS ERYTHEMATOSUS
  2. BACTRIM DS [Concomitant]
     Active Substance: SULFAMETHOXAZOLE\TRIMETHOPRIM
     Dosage: UNK UNK, Q3WK
     Route: 048
  3. PENTAMIDINE [Concomitant]
     Active Substance: PENTAMIDINE
     Indication: SUPPORTIVE CARE
     Dosage: 300 MILLIGRAM, QMO
  4. FLUCONAZOLE. [Concomitant]
     Active Substance: FLUCONAZOLE
     Indication: SUPPORTIVE CARE
     Dosage: (400 MG/D ORAL OR INTRAVENOUS
  5. ITRACONAZOLE. [Concomitant]
     Active Substance: ITRACONAZOLE
     Indication: SUPPORTIVE CARE
  6. CYCLOPHOSPHAMIDE. [Concomitant]
     Active Substance: CYCLOPHOSPHAMIDE
     Indication: RHEUMATOID ARTHRITIS
  7. METHYLPREDNISOLONE. [Concomitant]
     Active Substance: METHYLPREDNISOLONE
     Indication: MULTIPLE SCLEROSIS
     Dosage: 1 GRAM
     Route: 042
  8. CIPROFLOXACIN. [Concomitant]
     Active Substance: CIPROFLOXACIN
     Indication: SUPPORTIVE CARE
     Dosage: 750 MILLIGRAM, BID
     Route: 048
  9. ATGAM [Concomitant]
     Active Substance: EQUINE THYMOCYTE IMMUNE GLOBULIN
     Indication: SYSTEMIC LUPUS ERYTHEMATOSUS
     Dosage: 30 MILLIGRAM/KILOGRAM, QD
  10. NEUPOGEN [Suspect]
     Active Substance: FILGRASTIM
     Indication: STEM CELL TRANSPLANT
     Dosage: 10 MICROGRAM/KILOGRAM, QD
     Route: 058
  11. CYCLOPHOSPHAMIDE. [Concomitant]
     Active Substance: CYCLOPHOSPHAMIDE
     Indication: SYSTEMIC LUPUS ERYTHEMATOSUS
     Dosage: ( (200 MG/KG) WAS ADRFIINISTERED IN DIVIDED DOSES OF 50 MG/KG/D
     Route: 042
  12. VALACYCLOVIR [Concomitant]
     Active Substance: VALACYCLOVIR HYDROCHLORIDE
     Indication: SUPPORTIVE CARE
     Dosage: 500 MG TID ORAL OR INTRAVENOUS
  13. BACTRIM DS [Concomitant]
     Active Substance: SULFAMETHOXAZOLE\TRIMETHOPRIM
     Indication: SUPPORTIVE CARE
     Dosage: UNK UNK, QD
     Route: 048
  14. CYCLOPHOSPHAMIDE. [Concomitant]
     Active Substance: CYCLOPHOSPHAMIDE
     Indication: MULTIPLE SCLEROSIS
     Dosage: (120 MG/KG) IN DIVIDED DOSES OF 60 MG/KG/D
     Route: 042
  15. METHYLPREDNISOLONE. [Concomitant]
     Active Substance: METHYLPREDNISOLONE
     Indication: RHEUMATOID ARTHRITIS
  16. ATGAM [Concomitant]
     Active Substance: EQUINE THYMOCYTE IMMUNE GLOBULIN
     Indication: RHEUMATOID ARTHRITIS
  17. PIPERACILLIN AND TAZOBACTAM [Concomitant]
     Active Substance: PIPERACILLIN SODIUM\TAZOBACTAM SODIUM
     Indication: SUPPORTIVE CARE
     Route: 042

REACTIONS (16)
  - Arthralgia [Unknown]
  - Pulmonary toxicity [Unknown]
  - Systemic lupus erythematosus [Unknown]
  - Blood creatinine increased [Unknown]
  - Diarrhoea [Unknown]
  - Staphylococcus test positive [Unknown]
  - Varicella zoster virus infection [Unknown]
  - Streptococcus test positive [Unknown]
  - Clostridium test positive [Unknown]
  - Haematuria [Unknown]
  - Pancytopenia [Unknown]
  - Vomiting [Unknown]
  - Fungal test positive [Unknown]
  - Transaminases increased [Unknown]
  - Neutropenia [Unknown]
  - Nausea [Unknown]
